FAERS Safety Report 18053734 (Version 1)
Quarter: 2020Q3

REPORT INFORMATION
  Report Type: Spontaneous
  Country: US (occurrence: US)
  Receive Date: 20200721
  Receipt Date: 20200721
  Transmission Date: 20201103
  Serious: No
  Sender: FDA-Public Use
  Company Number: None

PATIENT
  Age: 51 Year
  Sex: Male
  Weight: 74.7 kg

DRUGS (4)
  1. ONCASPAR [Suspect]
     Active Substance: PEGASPARGASE
     Indication: ACUTE LYMPHOCYTIC LEUKAEMIA
     Dosage: ?          OTHER FREQUENCY:ONE DOSE;?
     Route: 042
  2. VINCRISTINE [Concomitant]
     Active Substance: VINCRISTINE
     Dates: start: 20200501, end: 20200522
  3. RITUXIMAB. [Concomitant]
     Active Substance: RITUXIMAB
     Dates: start: 20200501, end: 20200515
  4. DAUNORUBICIN [Concomitant]
     Active Substance: DAUNORUBICIN
     Dates: start: 20200501, end: 20200503

REACTIONS (3)
  - Hepatotoxicity [None]
  - Liver function test increased [None]
  - Drug hypersensitivity [None]

NARRATIVE: CASE EVENT DATE: 20200604
